FAERS Safety Report 8583812-2 (Version None)
Quarter: 2012Q3

REPORT INFORMATION
  Report Type: 
  Country: None (occurrence: None)
  Receive Date: 20120810
  Receipt Date: 20120730
  Transmission Date: 20120928
  Serious: Yes (Hospitalization)
  Sender: FDA-Public Use
  Company Number: JP-009507513-1207JPN012864

PATIENT

DRUGS (15)
  1. PEG-INTRON [Suspect]
     Indication: HEPATITIS C
     Dosage: 1.5MCG/KG/WEEK
     Route: 058
     Dates: start: 20120522, end: 20120529
  2. URSO 250 [Concomitant]
     Indication: HEPATITIS C
     Route: 048
  3. PRAMIPEXOLE DIHYDROCHLORIDE [Concomitant]
     Indication: PARKINSON'S DISEASE
     Route: 048
  4. MAGLAX (MAGNESIUM OXIDE) [Concomitant]
     Indication: PARKINSON'S DISEASE
     Route: 048
  5. REBETOL [Suspect]
     Route: 048
     Dates: start: 20120710
  6. AMAZOLON [Concomitant]
     Indication: PARKINSON'S DISEASE
     Route: 048
  7. REBETOL [Suspect]
     Route: 048
     Dates: start: 20120605, end: 20120709
  8. TELAVIC [Suspect]
     Indication: HEPATITIS C
     Route: 048
     Dates: start: 20120522, end: 20120531
  9. PEG-INTRON [Suspect]
     Dosage: 1MCG/KG/WEEK
     Route: 058
     Dates: start: 20120605
  10. LEVOTHYROXINE SODIUM [Concomitant]
     Indication: HYPOTHYROIDISM
     Dosage: 50 ONCE
     Route: 048
  11. ERISPAN [Concomitant]
     Indication: PARKINSON'S DISEASE
     Route: 048
  12. ZONISAMIDE [Concomitant]
     Indication: PARKINSON'S DISEASE
     Route: 048
  13. REBETOL [Suspect]
     Indication: HEPATITIS C
     Route: 048
     Dates: start: 20120522, end: 20120531
  14. TELAVIC [Suspect]
     Route: 048
     Dates: start: 20120605
  15. CARBIDOPA AND LEVODOPA [Concomitant]
     Indication: PARKINSON'S DISEASE
     Route: 048

REACTIONS (2)
  - NAUSEA [None]
  - NEUTROPHIL COUNT DECREASED [None]
